FAERS Safety Report 7049312-6 (Version None)
Quarter: 2010Q4

REPORT INFORMATION
  Report Type: 
  Country: None (occurrence: None)
  Receive Date: 20101018
  Receipt Date: 20090827
  Transmission Date: 20110411
  Serious: No
  Sender: FDA-Public Use
  Company Number: A0804736A

PATIENT
  Age: 79 Year
  Sex: Male

DRUGS (2)
  1. CEFTIN [Suspect]
     Indication: LYME DISEASE
     Dosage: 500MG TWICE PER DAY
     Route: 048
     Dates: start: 20090710, end: 20090730
  2. ADVIL [Concomitant]

REACTIONS (3)
  - DECREASED APPETITE [None]
  - FATIGUE [None]
  - WEIGHT DECREASED [None]
